FAERS Safety Report 12484042 (Version 3)
Quarter: 2016Q3

REPORT INFORMATION
  Report Type: Report from Study
  Country: AR (occurrence: AR)
  Receive Date: 20160621
  Receipt Date: 20160803
  Transmission Date: 20161109
  Serious: Yes (Hospitalization)
  Sender: FDA-Public Use
  Company Number: PHHY2016AR083702

PATIENT
  Age: 56 Year
  Sex: Male

DRUGS (1)
  1. SEEBRI BREEZHALER [Suspect]
     Active Substance: GLYCOPYRROLATE
     Indication: CHRONIC OBSTRUCTIVE PULMONARY DISEASE
     Dosage: UNK, QD
     Route: 065
     Dates: end: 20160618

REACTIONS (6)
  - Lymphadenopathy [Unknown]
  - Lung cyst [Recovering/Resolving]
  - Pain [Recovering/Resolving]
  - Lung neoplasm malignant [Recovering/Resolving]
  - Neoplasm progression [Recovering/Resolving]
  - Neoplasm malignant [Recovering/Resolving]

NARRATIVE: CASE EVENT DATE: 20160504
